FAERS Safety Report 9178293 (Version 1)
Quarter: 2013Q1

REPORT INFORMATION
  Report Type: Spontaneous
  Country: US (occurrence: US)
  Receive Date: 20130321
  Receipt Date: 20130321
  Transmission Date: 20140127
  Serious: Yes (Other)
  Sender: FDA-Public Use
  Company Number: US-BAYER-2013-033216

PATIENT
  Age: 21 Year
  Sex: Female

DRUGS (7)
  1. YASMIN [Suspect]
     Indication: CONTRACEPTION
  2. YASMIN [Suspect]
     Indication: PELVIC PAIN
  3. YASMIN [Suspect]
     Indication: OVARIAN CYST
  4. OCELLA [Suspect]
  5. IBUPROFEN [Concomitant]
  6. EYE OINTMENT [Concomitant]
     Indication: CONJUNCTIVITIS INFECTIVE
  7. NORCO [Concomitant]

REACTIONS (1)
  - Deep vein thrombosis [Recovered/Resolved]
